FAERS Safety Report 8170094-9 (Version None)
Quarter: 2012Q1

REPORT INFORMATION
  Report Type: 
  Country: None (occurrence: None)
  Receive Date: 20120228
  Receipt Date: 20120223
  Transmission Date: 20120608
  Serious: Yes (Death)
  Sender: FDA-Public Use
  Company Number: GB-PFIZER INC-2012049051

PATIENT
  Age: 54 Year
  Sex: Male
  Weight: 89 kg

DRUGS (5)
  1. TADALAFIL [Suspect]
     Indication: ERECTILE DYSFUNCTION
     Dosage: UNK
     Route: 048
     Dates: end: 20110315
  2. BECLOMETHASONE DIPROPIONATE [Concomitant]
     Indication: ASTHMA
     Dosage: 400 UG, 2X/DAY
     Route: 055
     Dates: start: 20000408, end: 20110315
  3. TEGRETOL [Concomitant]
     Indication: EPILEPSY
     Dosage: 100 MG, 2X/DAY
     Route: 048
     Dates: start: 20101210, end: 20110315
  4. SILDENAFIL CITRATE [Suspect]
     Indication: ERECTILE DYSFUNCTION
     Dosage: UNK
     Route: 048
     Dates: end: 20110315
  5. VENTOLIN [Concomitant]
     Indication: ASTHMA
     Dosage: 200 UG, 4X/DAY
     Route: 055
     Dates: start: 20100628, end: 20110315

REACTIONS (1)
  - PULMONARY HAEMORRHAGE [None]
